FAERS Safety Report 6430236-X (Version None)
Quarter: 2009Q4

REPORT INFORMATION
  Report Type: 
  Country: None (occurrence: None)
  Receive Date: 20091106
  Receipt Date: 20091026
  Transmission Date: 20100525
  Serious: Yes (Death)
  Sender: FDA-Public Use
  Company Number: JP-ROCHE-665485

PATIENT
  Age: 80 Year
  Sex: Male

DRUGS (1)
  1. TAMIFLU [Suspect]
     Route: 048
     Dates: start: 20091025

REACTIONS (2)
  - PNEUMONIA [None]
  - SHOCK [None]
